FAERS Safety Report 19180755 (Version 3)
Quarter: 2021Q2

REPORT INFORMATION
  Report Type: Spontaneous
  Country: PL (occurrence: PL)
  Receive Date: 20210426
  Receipt Date: 20210527
  Transmission Date: 20210717
  Serious: Yes (Other)
  Sender: FDA-Public Use
  Company Number: PL-ORGANON-O2104POL001828

PATIENT
  Sex: Female

DRUGS (1)
  1. NEXPLANON [Suspect]
     Active Substance: ETONOGESTREL
     Dosage: 1 DOSAGE FORM (1 IMPLANT)
     Route: 059

REACTIONS (9)
  - Musculoskeletal stiffness [Recovered/Resolved]
  - Nerve compression [Recovering/Resolving]
  - Paraesthesia [Recovered/Resolved]
  - Ulnar neuritis [Recovering/Resolving]
  - Muscle fatigue [Recovered/Resolved]
  - Device placement issue [Recovered/Resolved]
  - Sensory loss [Recovered/Resolved]
  - Neuralgia [Recovered/Resolved]
  - Pain in extremity [Recovered/Resolved]
